FAERS Safety Report 4337889-0 (Version None)
Quarter: 2004Q1

REPORT INFORMATION
  Report Type: 
  Country: None (occurrence: None)
  Receive Date: 20040329
  Receipt Date: 20040127
  Transmission Date: 20041129
  Serious: No
  Sender: FDA-Public Use
  Company Number: USA040157744

PATIENT
  Age: 36 Year
  Sex: Female
  Weight: 66 kg

DRUGS (4)
  1. STRATTERA [Suspect]
     Indication: ATTENTION DEFICIT/HYPERACTIVITY DISORDER
     Dosage: 80 MG/DAY
     Dates: start: 20031115
  2. WELLBUTRIN [Concomitant]
  3. FLUOXETINE [Concomitant]
  4. ZYRTEC [Concomitant]

REACTIONS (4)
  - FEELING JITTERY [None]
  - HYPERTENSION [None]
  - INSOMNIA [None]
  - RASH [None]
